FAERS Safety Report 16500044 (Version 4)
Quarter: 2019Q3

REPORT INFORMATION
  Report Type: Spontaneous
  Country: JP (occurrence: JP)
  Receive Date: 20190701
  Receipt Date: 20190829
  Transmission Date: 20191004
  Serious: Yes (Death, Hospitalization, Other)
  Sender: FDA-Public Use
  Company Number: PHJP2019JP007937

PATIENT
  Age: 59 Year
  Sex: Female

DRUGS (2)
  1. NEORAL [Suspect]
     Active Substance: CYCLOSPORINE
     Indication: MYASTHENIA GRAVIS
     Dosage: UNK
     Route: 048
  2. PREDONINE [Suspect]
     Active Substance: PREDNISOLONE
     Indication: MYASTHENIA GRAVIS
     Dosage: UNK
     Route: 048

REACTIONS (14)
  - Alopecia [Unknown]
  - Chest pain [Fatal]
  - Ventricular hypokinesia [Fatal]
  - Myocarditis [Fatal]
  - Ventricular fibrillation [Fatal]
  - Pyrexia [Fatal]
  - Malaise [Fatal]
  - Hepatic mass [Unknown]
  - Nephrotic syndrome [Unknown]
  - Myositis [Unknown]
  - Pain in extremity [Unknown]
  - Blood pressure decreased [Fatal]
  - Pulmonary mass [Unknown]
  - Product use in unapproved indication [Unknown]

NARRATIVE: CASE EVENT DATE: 2014
